FAERS Safety Report 6318213-0 (Version None)
Quarter: 2009Q3

REPORT INFORMATION
  Report Type: 
  Country: None (occurrence: None)
  Receive Date: 20090821
  Receipt Date: 20090812
  Transmission Date: 20100115
  Serious: Yes (Hospitalization)
  Sender: FDA-Public Use
  Company Number: B0589565A

PATIENT
  Age: 34 Year

DRUGS (4)
  1. MELPHALAN HYDROCHLORIDE [Suspect]
     Indication: BONE MARROW TRANSPLANT
     Route: 065
  2. CARMUSTINE [Suspect]
     Indication: BONE MARROW TRANSPLANT
  3. ETOPOSIDE [Suspect]
     Indication: BONE MARROW TRANSPLANT
  4. CYTOSAR-U [Suspect]
     Indication: BONE MARROW TRANSPLANT

REACTIONS (8)
  - CONDITION AGGRAVATED [None]
  - ENCEPHALITIS [None]
  - MENINGITIS [None]
  - MENTAL DISORDER DUE TO A GENERAL MEDICAL CONDITION [None]
  - MONOPARESIS [None]
  - PNEUMONIA [None]
  - TOXOPLASMOSIS [None]
  - URINARY RETENTION [None]
